FAERS Safety Report 6533785-9 (Version None)
Quarter: 2010Q1

REPORT INFORMATION
  Report Type: 
  Country: None (occurrence: None)
  Receive Date: 20100111
  Receipt Date: 20090122
  Transmission Date: 20100710
  Serious: No
  Sender: FDA-Public Use
  Company Number: US-ABBOTT-09P-163-0499382-00

PATIENT
  Sex: Male
  Weight: 74.91 kg

DRUGS (1)
  1. VICODIN [Suspect]
     Indication: PROCEDURAL PAIN
     Route: 048
     Dates: start: 20030101, end: 20030101

REACTIONS (2)
  - MALAISE [None]
  - VOMITING [None]
